FAERS Safety Report 24286167 (Version 2)
Quarter: 2024Q3

REPORT INFORMATION
  Report Type: Spontaneous
  Country: CA (occurrence: CA)
  Receive Date: 20240905
  Receipt Date: 20240920
  Transmission Date: 20241017
  Serious: Yes (Other)
  Sender: TEVA
  Company Number: CA-TEVA-VS-3238720

PATIENT
  Age: 50 Year
  Sex: Male

DRUGS (6)
  1. DULOXETINE [Suspect]
     Active Substance: DULOXETINE
     Indication: Depression
     Route: 065
  2. VORTIOXETINE [Suspect]
     Active Substance: VORTIOXETINE HYDROBROMIDE
     Indication: Depression
     Route: 065
  3. ZOLPIDEM [Suspect]
     Active Substance: ZOLPIDEM TARTRATE
     Indication: Depression
     Dosage: 10 15 MG IN NIGHT AS NEEDED
     Route: 065
  4. PSILOCYBIN [Suspect]
     Active Substance: PSILOCYBIN
     Indication: Depression
     Dosage: PSILOCYBIN
     Route: 048
  5. KETAMINE [Suspect]
     Active Substance: KETAMINE
     Indication: Depression
     Dosage: 6 INFUSIONS
     Route: 050
  6. QUETIAPINE [Suspect]
     Active Substance: QUETIAPINE
     Indication: Depression
     Dosage: 25 50 MG DAILY AS NEEDED
     Route: 065

REACTIONS (6)
  - Dizziness [Not Recovered/Not Resolved]
  - Headache [Unknown]
  - Fatigue [Not Recovered/Not Resolved]
  - Myalgia [Not Recovered/Not Resolved]
  - Withdrawal syndrome [Not Recovered/Not Resolved]
  - Drug ineffective [Unknown]
